FAERS Safety Report 12432701 (Version 1)
Quarter: 2016Q2

REPORT INFORMATION
  Report Type: Spontaneous
  Country: US (occurrence: US)
  Receive Date: 20160603
  Receipt Date: 20160603
  Transmission Date: 20160815
  Serious: No
  Sender: FDA-Public Use
  Company Number: US-BAYER-2016-108696

PATIENT
  Age: 73 Year
  Sex: Female
  Weight: 71.2 kg

DRUGS (8)
  1. TRAZODONE [Concomitant]
     Active Substance: TRAZODONE HYDROCHLORIDE
  2. MIRALAX [Suspect]
     Active Substance: POLYETHYLENE GLYCOL 3350
     Indication: CONSTIPATION
     Dosage: 1 DF, QD
     Route: 048
     Dates: start: 2014
  3. ROPINIROLE. [Concomitant]
     Active Substance: ROPINIROLE
  4. TOLTERODINE [Concomitant]
     Active Substance: TOLTERODINE
  5. TRAMADOL. [Concomitant]
     Active Substance: TRAMADOL
  6. MELOXICAM. [Concomitant]
     Active Substance: MELOXICAM
  7. LEXAPRO [Concomitant]
     Active Substance: ESCITALOPRAM OXALATE
  8. LYRICA [Concomitant]
     Active Substance: PREGABALIN

REACTIONS (1)
  - Product use issue [None]

NARRATIVE: CASE EVENT DATE: 2014
